FAERS Safety Report 17158961 (Version 1)
Quarter: 2019Q4

REPORT INFORMATION
  Report Type: Spontaneous
  Country: US (occurrence: US)
  Receive Date: 20191214
  Receipt Date: 20191214
  Transmission Date: 20200122
  Serious: No
  Sender: FDA-Public Use
  Company Number: None

PATIENT
  Sex: Female

DRUGS (2)
  1. RANITIDINE. [Suspect]
     Active Substance: RANITIDINE
  2. CARAFATE [Suspect]
     Active Substance: SUCRALFATE

REACTIONS (3)
  - Abdominal pain upper [None]
  - Cystitis interstitial [None]
  - Abdominal discomfort [None]

NARRATIVE: CASE EVENT DATE: 20191205
